FAERS Safety Report 17377369 (Version 1)
Quarter: 2020Q1

REPORT INFORMATION
  Report Type: Spontaneous
  Country: US (occurrence: US)
  Receive Date: 20200122
  Receipt Date: 20200122
  Transmission Date: 20200409
  Serious: Yes (Death, Hospitalization)
  Sender: FDA-Public Use
  Company Number: None

PATIENT
  Age: 59 Year
  Sex: Female

DRUGS (10)
  1. IPRATROPIUM [Concomitant]
     Active Substance: IPRATROPIUM
  2. KETOPROFEN. [Concomitant]
     Active Substance: KETOPROFEN
  3. AMBRISENTAN 5MG [Suspect]
     Active Substance: AMBRISENTAN
     Indication: PULMONARY ARTERIAL HYPERTENSION
     Route: 048
     Dates: start: 20191108
  4. AZITHROMYCIN ANHYDROUS. [Suspect]
     Active Substance: AZITHROMYCIN ANHYDROUS
  5. BACTRIM [Concomitant]
     Active Substance: SULFAMETHOXAZOLE\TRIMETHOPRIM
  6. FUROSEMIDE. [Concomitant]
     Active Substance: FUROSEMIDE
  7. IMURAN [Concomitant]
     Active Substance: AZATHIOPRINE
  8. FOSAMAX [Concomitant]
     Active Substance: ALENDRONATE SODIUM
  9. MYCOPHENOLATE [Concomitant]
     Active Substance: MYCOPHENOLIC ACID
  10. CEFDINIR. [Concomitant]
     Active Substance: CEFDINIR

REACTIONS (1)
  - Death [None]

NARRATIVE: CASE EVENT DATE: 20191231
